FAERS Safety Report 11984370 (Version 1)
Quarter: 2016Q1

REPORT INFORMATION
  Report Type: Spontaneous
  Country: US (occurrence: US)
  Receive Date: 20160201
  Receipt Date: 20160201
  Transmission Date: 20160526
  Serious: No
  Sender: FDA-Public Use
  Company Number: US-KADMON PHARMACEUTICALS, LLC-KAD201509-003211

PATIENT
  Age: 63 Year
  Sex: Female

DRUGS (5)
  1. RESTASIS [Concomitant]
     Active Substance: CYCLOSPORINE
  2. VIEKIRA PAK [Suspect]
     Active Substance: DASABUVIR\OMBITASVIR\PARITAPREVIR\RITONAVIR
     Indication: HEPATITIS C
     Dosage: TABLET
     Route: 048
     Dates: start: 20150827, end: 20150831
  3. AMBIEN [Concomitant]
     Active Substance: ZOLPIDEM TARTRATE
  4. RIBAVIRIN. [Suspect]
     Active Substance: RIBAVIRIN
     Indication: HEPATITIS C
     Route: 048
     Dates: start: 20150827, end: 20150831
  5. LEVOTHYROXINE. [Concomitant]
     Active Substance: LEVOTHYROXINE

REACTIONS (6)
  - Blood bilirubin increased [Unknown]
  - Fatigue [Unknown]
  - Yellow skin [Unknown]
  - Chromaturia [Unknown]
  - Ocular icterus [Unknown]
  - Headache [Unknown]

NARRATIVE: CASE EVENT DATE: 20150831
